FAERS Safety Report 4835495-2 (Version None)
Quarter: 2005Q4

REPORT INFORMATION
  Report Type: 
  Country: None (occurrence: None)
  Receive Date: 20051123
  Receipt Date: 20051111
  Transmission Date: 20060501
  Serious: Yes (Hospitalization)
  Sender: FDA-Public Use
  Company Number: US-JNJFOC-20051103334

PATIENT
  Sex: Female

DRUGS (2)
  1. REMICADE [Suspect]
     Dosage: THREE YEARS AGO.
     Route: 042
  2. REMICADE [Suspect]
     Indication: CROHN'S DISEASE
     Dosage: THIS WAS PATIENT'S 4TH INFUSION AFTER RESTARTING THERAPY.
     Route: 042

REACTIONS (3)
  - CHILLS [None]
  - INFUSION RELATED REACTION [None]
  - MUSCLE SPASMS [None]
